FAERS Safety Report 11218234 (Version 1)
Quarter: 2015Q2

REPORT INFORMATION
  Report Type: Spontaneous
  Country: CH (occurrence: CH)
  Receive Date: 20150625
  Receipt Date: 20150625
  Transmission Date: 20150821
  Serious: Yes (Hospitalization)
  Sender: FDA-Public Use
  Company Number: CH-LPDUSPRD-20150482

PATIENT
  Age: 86 Year
  Sex: Male

DRUGS (11)
  1. ATORVASTATIN [Suspect]
     Active Substance: ATORVASTATIN
     Dosage: 20 MG 1 IN 1 D
     Route: 065
  2. PANTOZOL [Suspect]
     Active Substance: PANTOPRAZOLE SODIUM
     Dosage: 40 MG 1 IN 1 D
     Route: 065
  3. CARDURA [Concomitant]
     Active Substance: DOXAZOSIN MESYLATE
     Dosage: 4 MG, 2 IN 1 D
     Route: 065
  4. FERINJECT [Suspect]
     Active Substance: FERRIC CARBOXYMALTOSE
     Dosage: DOSE NOT PROVIDED
     Route: 041
     Dates: start: 20141110
  5. ZYLORIC [Suspect]
     Active Substance: ALLOPURINOL
     Dosage: 100 MG 1 IN 1 D
     Route: 065
  6. MARCOUMAR [Concomitant]
     Active Substance: PHENPROCOUMON
     Dosage: 3 MG, ACCORDING TO INR
     Route: 065
  7. CONCOR [Concomitant]
     Active Substance: BISOPROLOL FUMARATE
     Dosage: 2.5 MG, 1 IN 1 D
     Route: 065
  8. SPASMO-URGENIN NEO [Suspect]
     Active Substance: TROSPIUM
     Dosage: 1 DOSAGE FORM, 1 IN 1 D
     Route: 065
  9. TOREM [Concomitant]
     Active Substance: TORSEMIDE
     Dosage: 200 MG, 1 IN 1 D
     Route: 065
  10. ZANIDIO [Concomitant]
     Dosage: 10 MG, 2 IN 1 D
     Route: 065
  11. LISINOPRIL. [Concomitant]
     Active Substance: LISINOPRIL
     Dosage: 20 MG, 1 IN 1 D
     Route: 065

REACTIONS (4)
  - Anaphylactic reaction [Unknown]
  - Feeling abnormal [Unknown]
  - Paraesthesia [Unknown]
  - Abdominal tenderness [Unknown]

NARRATIVE: CASE EVENT DATE: 20141110
